FAERS Safety Report 13494363 (Version 3)
Quarter: 2017Q3

REPORT INFORMATION
  Report Type: Spontaneous
  Country: FR (occurrence: FR)
  Receive Date: 20170428
  Receipt Date: 20170905
  Transmission Date: 20171127
  Serious: Yes (Other)
  Sender: FDA-Public Use
  Company Number: FR-009507513-1704FRA009137

PATIENT
  Sex: Female
  Weight: 71 kg

DRUGS (4)
  1. NEXPLANON [Suspect]
     Active Substance: ETONOGESTREL
     Dosage: UNK
  2. NEXPLANON [Suspect]
     Active Substance: ETONOGESTREL
     Dosage: UNK
  3. NEXPLANON [Suspect]
     Active Substance: ETONOGESTREL
     Dosage: 1 DF, UNK
     Route: 065
     Dates: start: 20151210
  4. NEXPLANON [Suspect]
     Active Substance: ETONOGESTREL
     Dosage: UNK

REACTIONS (9)
  - Pulmonary resection [Unknown]
  - Device embolisation [Unknown]
  - Device dislocation [Not Recovered/Not Resolved]
  - Weight increased [Not Recovered/Not Resolved]
  - Apparent death [Unknown]
  - Complication associated with device [Not Recovered/Not Resolved]
  - Complication associated with device [Not Recovered/Not Resolved]
  - Scar [Unknown]
  - Lung operation [Unknown]

NARRATIVE: CASE EVENT DATE: 2016
